FAERS Safety Report 6532963-2 (Version None)
Quarter: 2010Q1

REPORT INFORMATION
  Report Type: 
  Country: None (occurrence: None)
  Receive Date: 20100105
  Receipt Date: 20091222
  Transmission Date: 20100710
  Serious: Yes (Other)
  Sender: FDA-Public Use
  Company Number: 2009AP005153

PATIENT
  Sex: Female

DRUGS (2)
  1. DILT-CD [Suspect]
     Indication: ARRHYTHMIA
     Dosage: 120 MG
  2. DILTIAZEM [Concomitant]

REACTIONS (13)
  - ABNORMAL DREAMS [None]
  - ANXIETY [None]
  - CERUMEN IMPACTION [None]
  - DECREASED APPETITE [None]
  - DEMENTIA ALZHEIMER'S TYPE [None]
  - DYSPNOEA [None]
  - EAR PAIN [None]
  - FEAR [None]
  - HYPERHIDROSIS [None]
  - PARANOIA [None]
  - SOCIAL AVOIDANT BEHAVIOUR [None]
  - TEMPERATURE INTOLERANCE [None]
  - URINARY TRACT INFECTION [None]
